FAERS Safety Report 11795128 (Version 1)
Quarter: 2015Q4

REPORT INFORMATION
  Report Type: Spontaneous
  Country: US (occurrence: US)
  Receive Date: 20151202
  Receipt Date: 20151202
  Transmission Date: 20160305
  Serious: No
  Sender: FDA-Public Use
  Company Number: GXBR2015US002488

PATIENT
  Sex: Male

DRUGS (1)
  1. ALPRAZOLAM TABLETS USP [Suspect]
     Active Substance: ALPRAZOLAM
     Dosage: 1 MG, TID
     Route: 048

REACTIONS (2)
  - Agitation [Unknown]
  - Drug ineffective [Unknown]
